FAERS Safety Report 21047442 (Version 1)
Quarter: 2022Q3

REPORT INFORMATION
  Report Type: Spontaneous
  Country: US (occurrence: US)
  Receive Date: 20220706
  Receipt Date: 20220706
  Transmission Date: 20221027
  Serious: No
  Sender: FDA-Public Use
  Company Number: US-drreddys-SPO/USA/22/0151818

PATIENT
  Age: 23 Year
  Sex: Female

DRUGS (1)
  1. ZENATANE [Suspect]
     Active Substance: ISOTRETINOIN
     Indication: Acne cystic
     Dosage: RMA ISSUE DATE:03 FEBRUARY 2022 12:33:01 PM; 16 MARCH 2022 10:40:12 AM; 01 MAY 2022 05:27:11 PM;16 M

REACTIONS (2)
  - Rash [Unknown]
  - Product use in unapproved indication [Unknown]
